FAERS Safety Report 5706733-9 (Version None)
Quarter: 2008Q2

REPORT INFORMATION
  Report Type: 
  Country: None (occurrence: None)
  Receive Date: 20080416
  Receipt Date: 20080404
  Transmission Date: 20081010
  Serious: Yes (Other)
  Sender: FDA-Public Use
  Company Number: PHEH2007US08871

PATIENT
  Age: 40 Year
  Sex: Female

DRUGS (3)
  1. ZELNORM [Suspect]
     Indication: IRRITABLE BOWEL SYNDROME
     Dosage: 6 MG, BID
     Route: 048
     Dates: start: 20040501, end: 20050501
  2. ZELNORM [Suspect]
     Dosage: 6 MG, BID
     Route: 048
     Dates: end: 20060101
  3. YASMIN [Concomitant]
     Indication: CONTRACEPTION
     Dosage: 30 UG, QD
     Route: 048

REACTIONS (2)
  - ANGINA PECTORIS [None]
  - VENTRICULAR EXTRASYSTOLES [None]
